FAERS Safety Report 8509075 (Version 3)
Quarter: 2013Q1

REPORT INFORMATION
  Report Type: Spontaneous
  Country: US (occurrence: US)
  Receive Date: 20120412
  Receipt Date: 20130117
  Transmission Date: 20140127
  Serious: No
  Sender: FDA-Public Use
  Company Number: US-ASTRAZENECA-2012SE11805

PATIENT
  Age: 70 Year
  Sex: Female

DRUGS (1)
  1. NEXIUM [Suspect]
     Route: 048

REACTIONS (7)
  - Barrett^s oesophagus [Unknown]
  - Aphagia [Unknown]
  - Dysphagia [Unknown]
  - Oesophageal disorder [Unknown]
  - Weight decreased [Unknown]
  - Retching [Unknown]
  - Intentional drug misuse [Unknown]
